FAERS Safety Report 4327160-5 (Version None)
Quarter: 2004Q1

REPORT INFORMATION
  Report Type: 
  Country: None (occurrence: None)
  Receive Date: 20040330
  Receipt Date: 20040317
  Transmission Date: 20041129
  Serious: Yes (Hospitalization)
  Sender: FDA-Public Use
  Company Number: JP-GLAXOSMITHKLINE-B0327232A

PATIENT
  Age: 74 Year
  Sex: Female

DRUGS (4)
  1. PAXIL [Suspect]
     Indication: DEPRESSION
     Route: 048
     Dates: end: 20030622
  2. TRAZODONE HCL [Concomitant]
     Indication: INSOMNIA
     Route: 048
  3. FLUNITRAZEPAM [Concomitant]
     Route: 065
  4. ZOPICLONE [Concomitant]
     Route: 048

REACTIONS (6)
  - DELIRIUM [None]
  - DEPRESSED LEVEL OF CONSCIOUSNESS [None]
  - DISORIENTATION [None]
  - HALLUCINATION, VISUAL [None]
  - INTENTION TREMOR [None]
  - PYREXIA [None]
